FAERS Safety Report 5216000-8 (Version None)
Quarter: 2007Q1

REPORT INFORMATION
  Report Type: 
  Country: None (occurrence: None)
  Receive Date: 20061122
  Receipt Date: 20060322
  Transmission Date: 20070707
  Serious: Yes (Other)
  Sender: FDA-Public Use
  Company Number: 2006041630

PATIENT
  Age: 67 Year
  Sex: Female
  Weight: 65.7716 kg

DRUGS (5)
  1. LIPITOR [Suspect]
     Indication: LOW DENSITY LIPOPROTEIN INCREASED
     Dosage: 20 MG (20 MG, 1 IN 1 D)
     Dates: start: 20051129
  2. DYAZIDE [Concomitant]
  3. FOSAMAX [Concomitant]
  4. PSYLLIUM (PSYLLIUM) [Concomitant]
  5. ASPIRIN [Concomitant]

REACTIONS (8)
  - ANGIOEDEMA [None]
  - DYSPHAGIA [None]
  - FIBROMYALGIA [None]
  - GINGIVAL BLEEDING [None]
  - GINGIVAL SWELLING [None]
  - MOUTH ULCERATION [None]
  - MYALGIA [None]
  - OEDEMA PERIPHERAL [None]
